FAERS Safety Report 14417396 (Version 1)
Quarter: 2018Q1

REPORT INFORMATION
  Report Type: Report from Study
  Country: None (occurrence: ES)
  Receive Date: 20180122
  Receipt Date: 20180122
  Transmission Date: 20180509
  Serious: Yes (Other)
  Sender: FDA-Public Use
  Company Number: ES-ABBVIE-18K-144-2229353-00

PATIENT
  Age: 46 Year
  Sex: Female
  Weight: 57 kg

DRUGS (1)
  1. HUMIRA [Suspect]
     Active Substance: ADALIMUMAB
     Indication: PSORIATIC ARTHROPATHY
     Route: 058
     Dates: start: 20170719

REACTIONS (6)
  - Coronary artery occlusion [Recovered/Resolved]
  - Chest discomfort [Recovered/Resolved]
  - Injection site urticaria [Not Recovered/Not Resolved]
  - Injection site pruritus [Not Recovered/Not Resolved]
  - Injection site pain [Not Recovered/Not Resolved]
  - Coronary artery stenosis [Recovered/Resolved]

NARRATIVE: CASE EVENT DATE: 201707
